FAERS Safety Report 9491524 (Version 1)
Quarter: 2013Q1

REPORT INFORMATION
  Report Type: Not Available
  Country: US (occurrence: US)
  Receive Date: 20121219
  Receipt Date: 20121219
  Transmission Date: 20140127
  Serious: No
  Sender: FDA-Public Use
  Company Number: US-LUNDBECK-DKLU1079548

PATIENT
  Sex: Male

DRUGS (5)
  1. ONFI [Suspect]
     Indication: GRAND MAL CONVULSION
     Route: 048
     Dates: start: 20120329
  2. ONFI [Suspect]
     Route: 048
  3. DEPAKOTE [Concomitant]
     Indication: PRODUCT USED FOR UNKNOWN INDICATION
  4. KEPPRA [Concomitant]
     Indication: PRODUCT USED FOR UNKNOWN INDICATION
  5. TEGRETOL [Concomitant]
     Indication: PRODUCT USED FOR UNKNOWN INDICATION

REACTIONS (2)
  - Psychomotor hyperactivity [Unknown]
  - Feeling drunk [Unknown]
